FAERS Safety Report 5215228-0 (Version None)
Quarter: 2006Q4

REPORT INFORMATION
  Report Type: 
  Country: None (occurrence: None)
  Receive Date: 20061120
  Receipt Date: 20051116
  Transmission Date: 20070319
  Serious: Yes (Other)
  Sender: FDA-Public Use
  Company Number: HQWYE691023NOV05

PATIENT
  Age: 62 Year
  Sex: Female
  Weight: 81.72 kg

DRUGS (3)
  1. ADVIL COLD AND SINUS [Suspect]
     Indication: SINUS OPERATION
     Dosage: SEE IMAGE
     Route: 048
     Dates: start: 20040101, end: 20040101
  2. UNSPECIFIED NUTRITIONAL SUPPLEMENT (UNSPECIFIED NUTRITIONAL SUPPLEMENT [Concomitant]
  3. PROTONIX [Concomitant]

REACTIONS (2)
  - NASAL DRYNESS [None]
  - SOMNOLENCE [None]
